FAERS Safety Report 12965396 (Version 4)
Quarter: 2017Q1

REPORT INFORMATION
  Report Type: Report from Study
  Country: US (occurrence: US)
  Receive Date: 20161122
  Receipt Date: 20170324
  Transmission Date: 20170428
  Serious: Yes (Other)
  Sender: FDA-Public Use
  Company Number: US-SA-2015SA188992

PATIENT
  Age: 56 Year
  Sex: Male

DRUGS (1)
  1. LUMIZYME [Suspect]
     Active Substance: ALGLUCOSIDASE ALFA
     Indication: GLYCOGEN STORAGE DISEASE TYPE II
     Dosage: DOSE: 1950, FREQUENCY: Q2
     Route: 041
     Dates: start: 20050615, end: 20161122

REACTIONS (27)
  - Tongue paralysis [Not Recovered/Not Resolved]
  - Hypothermia [Recovered/Resolved]
  - Oxygen saturation decreased [Unknown]
  - Pain [Recovering/Resolving]
  - Urinary incontinence [Recovering/Resolving]
  - Dysphagia [Not Recovered/Not Resolved]
  - Fall [Not Recovered/Not Resolved]
  - Pyrexia [Not Recovered/Not Resolved]
  - Left ventricular hypertrophy [Unknown]
  - Dehydration [Not Recovered/Not Resolved]
  - Dyspnoea [Not Recovered/Not Resolved]
  - Fatigue [Recovering/Resolving]
  - Peripheral coldness [Recovered/Resolved]
  - Escherichia urinary tract infection [Recovering/Resolving]
  - Aspiration [Not Recovered/Not Resolved]
  - Lung disorder [Recovering/Resolving]
  - Tongue movement disturbance [Not Recovered/Not Resolved]
  - Pseudomonas infection [Unknown]
  - Muscle contracture [Recovering/Resolving]
  - Burning sensation [Recovering/Resolving]
  - Increased bronchial secretion [Not Recovered/Not Resolved]
  - Depression [Not Recovered/Not Resolved]
  - Malaise [Not Recovered/Not Resolved]
  - Urinary tract infection [Unknown]
  - Respiratory tract infection [Unknown]
  - Sputum abnormal [Not Recovered/Not Resolved]
  - Escherichia infection [Unknown]

NARRATIVE: CASE EVENT DATE: 201410
